FAERS Safety Report 7094338-X (Version None)
Quarter: 2010Q4

REPORT INFORMATION
  Report Type: 
  Country: None (occurrence: None)
  Receive Date: 20101102
  Receipt Date: 20101018
  Transmission Date: 20110411
  Serious: Yes (Death, Life-Threatening, Hospitalization)
  Sender: FDA-Public Use
  Company Number: AUR-APL-2010-02597

PATIENT
  Age: 59 Year
  Sex: Male

DRUGS (7)
  1. MIRTAZAPINE [Suspect]
     Dosage: 60MG - ONCE DAILY
  2. AMITRIPTYLINE HCL [Suspect]
     Dosage: 125MG - ONCE DAILY
  3. ALPRAZOLAM [Concomitant]
  4. ATENOLOL [Concomitant]
  5. BENDROFLUMETHIAZIDE [Concomitant]
  6. ISOSORBIDE DINITRATE [Concomitant]
  7. MONONITRATE [Concomitant]

REACTIONS (17)
  - AGITATION [None]
  - CEREBELLAR ATROPHY [None]
  - CEREBRAL ARTERIOSCLEROSIS [None]
  - DEPRESSED LEVEL OF CONSCIOUSNESS [None]
  - DISSEMINATED INTRAVASCULAR COAGULATION [None]
  - DRUG TOXICITY [None]
  - DYSSTASIA [None]
  - FATIGUE [None]
  - HEADACHE [None]
  - HEART RATE INCREASED [None]
  - HEPATIC ENZYME INCREASED [None]
  - INTESTINAL DILATATION [None]
  - METABOLIC ACIDOSIS [None]
  - MULTI-ORGAN FAILURE [None]
  - MYALGIA [None]
  - PYREXIA [None]
  - SEROTONIN SYNDROME [None]
